FAERS Safety Report 13214165 (Version 1)
Quarter: 2017Q1

REPORT INFORMATION
  Report Type: Spontaneous
  Country: US (occurrence: US)
  Receive Date: 20170210
  Receipt Date: 20170210
  Transmission Date: 20170428
  Serious: Yes (Other)
  Sender: FDA-Public Use
  Company Number: US-SHIRE-US201702273

PATIENT
  Age: 15 Year
  Sex: Male
  Weight: 68.27 kg

DRUGS (2)
  1. VYVANSE [Suspect]
     Active Substance: LISDEXAMFETAMINE DIMESYLATE
     Dosage: UNK, UNKNOWN
     Route: 048
  2. VYVANSE [Suspect]
     Active Substance: LISDEXAMFETAMINE DIMESYLATE
     Indication: ATTENTION DEFICIT/HYPERACTIVITY DISORDER
     Dosage: 50 MG, 1X/DAY:QD
     Route: 048
     Dates: start: 20161221

REACTIONS (11)
  - Suicidal ideation [Not Recovered/Not Resolved]
  - Hostility [Not Recovered/Not Resolved]
  - Headache [Unknown]
  - Anger [Unknown]
  - Educational problem [Unknown]
  - Abdominal pain upper [Unknown]
  - Drug dose omission [Unknown]
  - Decreased appetite [Not Recovered/Not Resolved]
  - Migraine [Not Recovered/Not Resolved]
  - Personality change [Unknown]
  - Diarrhoea [Not Recovered/Not Resolved]

NARRATIVE: CASE EVENT DATE: 20161221
